FAERS Safety Report 8228559-7 (Version None)
Quarter: 2012Q1

REPORT INFORMATION
  Report Type: 
  Country: None (occurrence: None)
  Receive Date: 20120322
  Receipt Date: 20110413
  Transmission Date: 20120608
  Serious: No
  Sender: FDA-Public Use
  Company Number: US-BRISTOL-MYERS SQUIBB COMPANY-15671589

PATIENT
  Sex: Female

DRUGS (1)
  1. ERBITUX [Suspect]

REACTIONS (2)
  - TONGUE HAEMORRHAGE [None]
  - BLOOD MAGNESIUM ABNORMAL [None]
